FAERS Safety Report 10232373 (Version 2)
Quarter: 2014Q2

REPORT INFORMATION
  Report Type: Spontaneous
  Country: JP (occurrence: JP)
  Receive Date: 20140612
  Receipt Date: 20140627
  Transmission Date: 20141212
  Serious: Yes (Hospitalization)
  Sender: FDA-Public Use
  Company Number: JP-EISAI INC-E2090-03319-SPO-JP

PATIENT
  Age: 87 Year
  Sex: Female

DRUGS (1)
  1. EXCEGRAN [Suspect]
     Indication: EPILEPSY
     Dosage: 300 MG DAILY
     Route: 048
     Dates: start: 20130831, end: 20131019

REACTIONS (1)
  - Urticaria [Recovered/Resolved]
